FAERS Safety Report 16190540 (Version 1)
Quarter: 2019Q2

REPORT INFORMATION
  Report Type: Spontaneous
  Country: JP (occurrence: JP)
  Receive Date: 20190412
  Receipt Date: 20190412
  Transmission Date: 20190711
  Serious: Yes (Other)
  Sender: FDA-Public Use
  Company Number: JP-PFIZER INC-2019148333

PATIENT
  Sex: Female

DRUGS (3)
  1. SUNRYTHM [Concomitant]
     Active Substance: PILSICAINIDE HYDROCHLORIDE
     Dosage: UNK
  2. WYPAX 0.5 [Suspect]
     Active Substance: LORAZEPAM
     Indication: MYOCARDIAL INFARCTION
     Dosage: 0.5 MG, 1X/DAY
     Route: 048
  3. WYPAX 0.5 [Suspect]
     Active Substance: LORAZEPAM
     Indication: FEELING ABNORMAL

REACTIONS (4)
  - Palpitations [Recovered/Resolved]
  - Dizziness [Unknown]
  - Sudden hearing loss [Unknown]
  - Drug effective for unapproved indication [Unknown]

NARRATIVE: CASE EVENT DATE: 2016
